FAERS Safety Report 5536134-8 (Version None)
Quarter: 2007Q4

REPORT INFORMATION
  Report Type: 
  Country: None (occurrence: None)
  Receive Date: 20071206
  Receipt Date: 20071126
  Transmission Date: 20080405
  Serious: Yes (Other)
  Sender: FDA-Public Use
  Company Number: US-PFIZER INC-2007099982

PATIENT
  Sex: Male

DRUGS (2)
  1. CELEBREX [Suspect]
     Indication: ARTHRALGIA
     Route: 048
  2. CELEBREX [Suspect]
     Indication: OSTEOARTHRITIS

REACTIONS (1)
  - HEART INJURY [None]
